FAERS Safety Report 5972962-2 (Version None)
Quarter: 2008Q4

REPORT INFORMATION
  Report Type: 
  Country: None (occurrence: None)
  Receive Date: 20081201
  Receipt Date: 20081124
  Transmission Date: 20090506
  Serious: Yes (Disabling)
  Sender: FDA-Public Use
  Company Number: PHHY2008FR29779

PATIENT
  Sex: Male

DRUGS (7)
  1. NEORAL [Suspect]
     Indication: DERMATOMYOSITIS
     Dosage: 75 MG, BID
     Dates: start: 20071101
  2. NEORAL [Interacting]
     Indication: POLYMYOSITIS
     Dosage: UNK
     Dates: start: 20080601, end: 20080806
  3. NEORAL [Interacting]
     Dosage: UNK
     Dates: start: 20080825, end: 20080827
  4. TAHOR [Interacting]
     Indication: HYPERCHOLESTEROLAEMIA
     Dosage: 10 MG/DAY
     Dates: start: 20060101, end: 20080101
  5. TAHOR [Interacting]
     Dosage: UNK
     Dates: start: 20080730, end: 20080811
  6. METFORMIN HCL [Concomitant]
     Indication: TYPE 2 DIABETES MELLITUS
  7. CORTICOSTEROIDS [Concomitant]
     Indication: DERMATOMYOSITIS
     Dosage: UNK
     Dates: start: 20050101

REACTIONS (7)
  - BLOOD CHOLESTEROL INCREASED [None]
  - BLOOD CREATINE PHOSPHOKINASE INCREASED [None]
  - BLOOD CREATININE INCREASED [None]
  - CONDITION AGGRAVATED [None]
  - DERMATOMYOSITIS [None]
  - MUSCULAR WEAKNESS [None]
  - MYALGIA [None]
